FAERS Safety Report 12986005 (Version 1)
Quarter: 2016Q4

REPORT INFORMATION
  Report Type: Report from Study
  Country: US (occurrence: US)
  Receive Date: 20161130
  Receipt Date: 20161130
  Transmission Date: 20170207
  Serious: Yes (Other)
  Sender: FDA-Public Use
  Company Number: US-ROCHE-1861852

PATIENT
  Age: 58 Year
  Sex: Female
  Weight: 47.6 kg

DRUGS (3)
  1. ABT-888 [Suspect]
     Active Substance: VELIPARIB
     Indication: OVARIAN EPITHELIAL CANCER
     Route: 065
     Dates: start: 20160323
  2. BEVACIZUMAB [Suspect]
     Active Substance: BEVACIZUMAB
     Indication: OVARIAN EPITHELIAL CANCER
     Route: 065
     Dates: start: 20160415
  3. ABT-888 [Suspect]
     Active Substance: VELIPARIB
     Route: 065
     Dates: start: 20160415

REACTIONS (2)
  - Neutrophil count decreased [Unknown]
  - Tremor [Unknown]
